FAERS Safety Report 7594773 (Version 3)
Quarter: 2012Q4

REPORT INFORMATION
  Report Type: 
  Country: US (occurrence: US)
  Receive Date: 20100920
  Receipt Date: 20121210
  Transmission Date: 20130627
  Serious: Yes (Hospitalization)
  Sender: FDA-Public Use
  Company Number: US-ASTRAZENECA-2010SE23030

PATIENT
  Age: 49 Year
  Sex: Male

DRUGS (14)
  1. SEROQUEL [Suspect]
     Indication: BIPOLAR DISORDER
     Route: 048
  2. SEROQUEL [Suspect]
     Indication: BIPOLAR DISORDER
     Route: 048
     Dates: start: 2004, end: 2007
  3. SEROQUEL [Suspect]
     Indication: BIPOLAR DISORDER
     Route: 048
     Dates: start: 2007, end: 201004
  4. SEROQUEL [Suspect]
     Indication: BIPOLAR DISORDER
     Route: 048
     Dates: start: 201004
  5. SEROQUEL [Suspect]
     Indication: BIPOLAR DISORDER
     Route: 048
     Dates: end: 201006
  6. SYMBICORT PMDI [Suspect]
     Route: 055
  7. PROPRANOLOL [Concomitant]
  8. LITHIUM [Concomitant]
  9. CELEXA [Concomitant]
  10. LEVOTHYROXINE [Concomitant]
  11. PREVACID [Concomitant]
  12. BABY ASPIRIN [Concomitant]
  13. VITAMINS [Concomitant]
  14. PHILLIPS COLON HEALTH [Concomitant]

REACTIONS (21)
  - Insomnia [Unknown]
  - Drug dependence [Unknown]
  - Chills [Unknown]
  - Cold sweat [Unknown]
  - Dehydration [Unknown]
  - Renal disorder [Unknown]
  - Liver disorder [Unknown]
  - Lung disorder [Unknown]
  - Migraine [Unknown]
  - Malaise [Unknown]
  - Respiratory disorder [Unknown]
  - Logorrhoea [Unknown]
  - Thyroid disorder [Unknown]
  - Withdrawal syndrome [Recovered/Resolved]
  - Pyrexia [Unknown]
  - Anxiety [Unknown]
  - Dizziness [Unknown]
  - Nausea [Unknown]
  - Insomnia [Unknown]
  - Vomiting [Unknown]
  - Drug dose omission [Unknown]
